FAERS Safety Report 13943412 (Version 1)
Quarter: 2017Q3

REPORT INFORMATION
  Report Type: Spontaneous
  Country: US (occurrence: US)
  Receive Date: 20170907
  Receipt Date: 20170907
  Transmission Date: 20171128
  Serious: Yes (Hospitalization, Other)
  Sender: FDA-Public Use
  Company Number: US-BRISTOL-MYERS SQUIBB COMPANY-BMS-2017-077935

PATIENT
  Age: 65 Year
  Sex: Male

DRUGS (1)
  1. DASATINIB [Suspect]
     Active Substance: DASATINIB
     Indication: NON-HODGKIN^S LYMPHOMA
     Route: 065

REACTIONS (7)
  - Embolism arterial [Unknown]
  - Hospitalisation [Unknown]
  - Sepsis [Unknown]
  - Gastrosplenic fistula [Unknown]
  - Splenic abscess [Unknown]
  - Wrong technique in product usage process [Unknown]
  - Dysphagia [Unknown]

NARRATIVE: CASE EVENT DATE: 20170513
